FAERS Safety Report 11684521 (Version 2)
Quarter: 2015Q4

REPORT INFORMATION
  Report Type: Spontaneous
  Country: CL (occurrence: CL)
  Receive Date: 20151029
  Receipt Date: 20151104
  Transmission Date: 20160304
  Serious: Yes (Death, Hospitalization, Other)
  Sender: FDA-Public Use
  Company Number: CL-CONCORDIA PHARMACEUTICALS INC.-CO-ZN-CL-2015-060

PATIENT
  Age: 69 Year
  Sex: Female
  Weight: 78.09 kg

DRUGS (1)
  1. FLUTIC FUR+UMECLID+VILANT VS FLUTIC FUR+VILANT VS UMECLID+VILANTER [Suspect]
     Active Substance: FLUTICASONE FUROATE\UMECLIDINIUM BROMIDE\VILANTEROL TRIFENATATE
     Indication: CHRONIC OBSTRUCTIVE PULMONARY DISEASE
     Dates: start: 20150415

REACTIONS (1)
  - Acute kidney injury [Fatal]

NARRATIVE: CASE EVENT DATE: 20151006
